FAERS Safety Report 4777398-8 (Version None)
Quarter: 2005Q3

REPORT INFORMATION
  Report Type: 
  Country: None (occurrence: None)
  Receive Date: 20050921
  Receipt Date: 20050914
  Transmission Date: 20060218
  Serious: Yes (Death, Other)
  Sender: FDA-Public Use
  Company Number: US_0410106356

PATIENT
  Age: 43 Year
  Sex: Male
  Weight: 134 kg

DRUGS (10)
  1. ZYPREXA [Suspect]
     Indication: BIPOLAR DISORDER
     Dosage: 15 MG
     Dates: start: 20011101, end: 20030917
  2. PROZAC [Concomitant]
  3. CELEXA [Concomitant]
  4. PAXIL [Concomitant]
  5. KLONOPIN [Concomitant]
  6. CARBAMAZEPINE [Concomitant]
  7. DEPAKOTE [Concomitant]
  8. RISPERDAL [Concomitant]
  9. HYDROXYZINE [Concomitant]
  10. PROPRANOLOL [Concomitant]

REACTIONS (1)
  - PANCREATITIS [None]
